FAERS Safety Report 5852073-7 (Version None)
Quarter: 2008Q3

REPORT INFORMATION
  Report Type: 
  Country: None (occurrence: None)
  Receive Date: 20080821
  Receipt Date: 20080812
  Transmission Date: 20090109
  Serious: Yes (Other)
  Sender: FDA-Public Use
  Company Number: GB-RANBAXY-2008RR-17297

PATIENT

DRUGS (5)
  1. CEFUROXIME RANBAXY 125 MG COMPRIME [Suspect]
     Indication: KERATITIS BACTERIAL
     Dosage: UNK MG, QD
     Route: 047
     Dates: start: 20050101
  2. DEXAMETHASONE SODIUM PHOSPHATE [Concomitant]
     Indication: KERATITIS BACTERIAL
     Dosage: UNK
     Route: 047
     Dates: start: 20050101
  3. EXOCIN [Suspect]
     Indication: KERATITIS BACTERIAL
     Dosage: UNK
     Route: 047
     Dates: start: 20050101
  4. CEFUROXIME [Concomitant]
     Dosage: UNK
     Dates: start: 20040101
  5. ALLERGAN [Concomitant]
     Dosage: UNK
     Dates: start: 20040101

REACTIONS (1)
  - CORNEAL DEPOSITS [None]
